FAERS Safety Report 5403522-X (Version None)
Quarter: 2007Q3

REPORT INFORMATION
  Report Type: 
  Country: None (occurrence: None)
  Receive Date: 20070730
  Receipt Date: 20070726
  Transmission Date: 20080115
  Serious: Yes (Death)
  Sender: FDA-Public Use
  Company Number: TCI2007A03703

PATIENT
  Age: 78 Year
  Sex: Male

DRUGS (6)
  1. LEUPROLIDE ACETATE [Suspect]
     Indication: PROSTATE CANCER
     Dosage: 11.25 MG (11.25 MG, 1 IN 12 WK); SUBCUTANEOUS
     Route: 058
     Dates: start: 20061102, end: 20070125
  2. CASODEX [Concomitant]
  3. HARNAL D (TAMSULOSIN HYDROCHLORIDE) (TABLETS) [Concomitant]
  4. LOXONIN (LOXOPROFEN SODIUM) (UNKNOWN) [Concomitant]
  5. MUCOSTA (REBAMIPIDE) (PREPARATION FOR ORAL USE (NOS)) [Concomitant]
  6. MS CONTIN [Concomitant]

REACTIONS (1)
  - LUNG NEOPLASM MALIGNANT [None]
